FAERS Safety Report 21831913 (Version 2)
Quarter: 2023Q1

REPORT INFORMATION
  Report Type: Report from Study
  Country: CA (occurrence: CA)
  Receive Date: 20230106
  Receipt Date: 20230109
  Transmission Date: 20230418
  Serious: Yes (Other)
  Sender: FDA-Public Use
  Company Number: CA-JNJFOC-20230103896

PATIENT
  Sex: Male

DRUGS (1)
  1. REMICADE [Suspect]
     Active Substance: INFLIXIMAB
     Indication: Crohn^s disease
     Dosage: ON 03-JAN-2023, PATIENT RECEIVED 78TH INFUSION OF 400 MG.
     Route: 042
     Dates: start: 20130531

REACTIONS (1)
  - Basal cell carcinoma [Recovered/Resolved]
